FAERS Safety Report 9278238 (Version 1)
Quarter: 2013Q2

REPORT INFORMATION
  Report Type: Spontaneous
  Country: US (occurrence: US)
  Receive Date: 20130508
  Receipt Date: 20130508
  Transmission Date: 20140414
  Serious: No
  Sender: FDA-Public Use
  Company Number: US-BAYER-2013-057144

PATIENT
  Age: 67 Year
  Sex: Male
  Weight: 108.84 kg

DRUGS (12)
  1. ALEVE CAPLET [Suspect]
     Dosage: 2 DF, QD WITH FOOD
     Route: 048
  2. SPIRONOLACTONE [Concomitant]
  3. METFORMIN [Concomitant]
  4. LOSARTAN POTASSIUM W/HYDROCHLOROTHIAZIDE [Concomitant]
  5. LEVOTHYROXINE [Concomitant]
  6. LYRICA [Concomitant]
  7. FERROUS SULFATE [Concomitant]
  8. VITAMIN C [Concomitant]
  9. VESICARE [Concomitant]
  10. METOPROLOL TARTRATE [Concomitant]
  11. ROPINIROLE HYDROCHLORIDE [Concomitant]
  12. SPIRIVA [Concomitant]

REACTIONS (2)
  - Incorrect drug administration duration [None]
  - Unevaluable event [None]
